FAERS Safety Report 18450912 (Version 1)
Quarter: 2020Q4

REPORT INFORMATION
  Report Type: Spontaneous
  Country: FR (occurrence: FR)
  Receive Date: 20201102
  Receipt Date: 20201102
  Transmission Date: 20210114
  Serious: Yes (Other)
  Sender: FDA-Public Use
  Company Number: FR-BEH-2020124128

PATIENT
  Age: 50 Year
  Sex: Female
  Weight: 43 kg

DRUGS (1)
  1. HIZENTRA [Suspect]
     Active Substance: HUMAN IMMUNOGLOBULIN G
     Indication: IMMUNODEFICIENCY COMMON VARIABLE
     Dosage: 20 GRAM, QMT
     Route: 058
     Dates: start: 20201003, end: 20201003

REACTIONS (3)
  - Administration site reaction [Recovering/Resolving]
  - Dermatitis bullous [Recovering/Resolving]
  - Administration site oedema [Recovering/Resolving]

NARRATIVE: CASE EVENT DATE: 20201003
